FAERS Safety Report 10756733 (Version 1)
Quarter: 2015Q1

REPORT INFORMATION
  Report Type: Spontaneous
  Country: US (occurrence: US)
  Receive Date: 20150202
  Receipt Date: 20150202
  Transmission Date: 20150721
  Serious: No
  Sender: FDA-Public Use
  Company Number: US-BAUSCH-SYM-2013-14515

PATIENT
  Age: 48 Year
  Sex: Male
  Weight: 59.02 kg

DRUGS (1)
  1. XENAZINE [Suspect]
     Active Substance: TETRABENAZINE
     Indication: PRODUCT USED FOR UNKNOWN INDICATION
     Dosage: 25 MG IN THE MORNING AND 12.5 MG IN THE EVENING
     Route: 048

REACTIONS (2)
  - Gait disturbance [Unknown]
  - Musculoskeletal stiffness [Unknown]
